FAERS Safety Report 7936955-8 (Version None)
Quarter: 2011Q4

REPORT INFORMATION
  Report Type: 
  Country: None (occurrence: None)
  Receive Date: 20111123
  Receipt Date: 20111121
  Transmission Date: 20120403
  Serious: Yes (Hospitalization)
  Sender: FDA-Public Use
  Company Number: DE-ABBOTT-11P-062-0855139-00

PATIENT
  Sex: Male
  Weight: 75 kg

DRUGS (2)
  1. METHOTREXATE [Concomitant]
     Indication: CROHN'S DISEASE
     Dosage: ONCE PER WEEK
  2. HUMIRA [Suspect]
     Indication: CROHN'S DISEASE
     Route: 058
     Dates: start: 20110407, end: 20110822

REACTIONS (1)
  - INGUINAL HERNIA [None]
